FAERS Safety Report 13417917 (Version 1)
Quarter: 2017Q2

REPORT INFORMATION
  Report Type: Spontaneous
  Country: US (occurrence: US)
  Receive Date: 20170407
  Receipt Date: 20170407
  Transmission Date: 20170830
  Serious: No
  Sender: FDA-Public Use
  Company Number: US-GREER LABORATORIES, INC.-1065161

PATIENT
  Age: 29 Year
  Sex: Male
  Weight: 86.36 kg

DRUGS (12)
  1. POLLENS - TREES, ASPEN, POPULUS TREMULOIDES [Suspect]
     Active Substance: POPULUS TREMULOIDES POLLEN
     Indication: RHINITIS ALLERGIC
     Route: 058
     Dates: start: 20170222
  2. STANDARDIZED GRASS POLLEN, ORCHARD GRASS [Suspect]
     Active Substance: DACTYLIS GLOMERATA POLLEN
     Route: 058
     Dates: start: 20170222
  3. STANDARDIZED TIMOTHY GRASS [Suspect]
     Active Substance: PHLEUM PRATENSE POLLEN
     Route: 058
     Dates: start: 20170222
  4. STANDARDIZED GRASS POLLEN, ORCHARD GRASS [Suspect]
     Active Substance: DACTYLIS GLOMERATA POLLEN
     Route: 058
     Dates: start: 20170222
  5. STANDARDIZED GRASS POLLEN, BLUEGRASS, KENTUCKY (JUNE) [Suspect]
     Active Substance: POA PRATENSIS POLLEN
     Route: 058
     Dates: start: 20170222
  6. STANDARDIZED TIMOTHY GRASS [Suspect]
     Active Substance: PHLEUM PRATENSE POLLEN
     Route: 058
     Dates: start: 20170222
  7. STERILE DILUENT FOR ALLERGENIC EXTRACT (ALBUMIN (HUMAN)\PHENOL) [Suspect]
     Active Substance: ALBUMIN HUMAN\PHENOL
     Route: 058
     Dates: start: 20170222
  8. POLLENS - TREES, BIRCH, WHITE, BETULA POPULIFOLIA [Suspect]
     Active Substance: BETULA POPULIFOLIA POLLEN
     Route: 058
  9. POLLENS - TREES, GS MAPLE MIX ACER RUBRUM \ ACER SACCHARUM [Suspect]
     Active Substance: ACER RUBRUM POLLEN\ACER SACCHARUM POLLEN
     Route: 058
     Dates: start: 20170222
  10. WHITE OAK [Suspect]
     Active Substance: QUERCUS ALBA POLLEN
     Route: 058
     Dates: start: 20170222
  11. POLLENS - TREES, ELM, AMERICAN ULMUS AMERICANA [Suspect]
     Active Substance: ULMUS AMERICANA POLLEN
     Route: 058
     Dates: start: 20170202
  12. POLLENS - WEEDS AND GARDEN PLANTS, SHORT RAGWEED, AMBROSIA ARTEMISIIFOLIA [Suspect]
     Active Substance: AMBROSIA ARTEMISIIFOLIA POLLEN
     Route: 058
     Dates: start: 20170222

REACTIONS (4)
  - Pruritus allergic [Recovered/Resolved]
  - Pruritus generalised [None]
  - Urticaria [Recovered/Resolved]
  - Feeling hot [Recovered/Resolved]

NARRATIVE: CASE EVENT DATE: 20170228
